FAERS Safety Report 9358091 (Version 4)
Quarter: 2013Q3

REPORT INFORMATION
  Report Type: Spontaneous
  Country: US (occurrence: US)
  Receive Date: 20130620
  Receipt Date: 20130920
  Transmission Date: 20140515
  Serious: Yes (Other)
  Sender: FDA-Public Use
  Company Number: US-PFIZER INC-2013181118

PATIENT
  Age: 38 Year
  Sex: Male
  Weight: 101 kg

DRUGS (10)
  1. BICILLIN L-A [Suspect]
     Indication: ACUTE SINUSITIS
     Dosage: 1.2 MMU / 2 ML, SINGLE
     Route: 030
     Dates: start: 20130604, end: 20130604
  2. BICILLIN L-A [Suspect]
     Indication: PHARYNGITIS
  3. BICILLIN L-A [Suspect]
     Indication: BRONCHITIS
  4. BICILLIN L-A [Suspect]
     Indication: UPPER RESPIRATORY TRACT INFECTION
  5. BICILLIN L-A [Suspect]
     Indication: SINUSITIS
  6. BENICAR [Concomitant]
     Indication: HYPERTENSION
     Dosage: 20 MG, 1X/DAY (30 DAYS)
  7. XANAX [Concomitant]
     Indication: ANXIETY
     Dosage: 1 MG, 2X/DAY
  8. TRICOR [Concomitant]
     Dosage: 145 MG, 1X/DAY, 30 DAYS
  9. ZITHROMAX [Concomitant]
     Dosage: 250 MG, 1X/DAY, 5 DAYS
  10. LOSARTAN [Concomitant]
     Indication: HYPERTENSION
     Dosage: 50 MG DAILY

REACTIONS (6)
  - Chest pain [Recovered/Resolved]
  - Syncope [Recovered/Resolved]
  - Inflammation [Recovered/Resolved]
  - Vaccination site swelling [Recovered/Resolved]
  - Vaccination site pain [Recovered/Resolved]
  - Vaccination site erythema [Recovered/Resolved]
